FAERS Safety Report 24937090 (Version 1)
Quarter: 2025Q1

REPORT INFORMATION
  Report Type: Spontaneous
  Country: US (occurrence: US)
  Receive Date: 20250206
  Receipt Date: 20250206
  Transmission Date: 20250408
  Serious: Yes (Other)
  Sender: GLAND PHARMA LTD
  Company Number: US-GLANDPHARMA-US-2025GLNSPO00182

PATIENT
  Sex: Female

DRUGS (1)
  1. PACLITAXEL [Suspect]
     Active Substance: PACLITAXEL
     Indication: Breast cancer
     Route: 065

REACTIONS (9)
  - Neuropathy peripheral [Unknown]
  - Gastrointestinal disorder [Unknown]
  - Decreased appetite [Recovered/Resolved]
  - Nail disorder [Unknown]
  - Onychalgia [Unknown]
  - Alopecia [Recovering/Resolving]
  - Fatigue [Unknown]
  - Headache [Unknown]
  - Nausea [Unknown]
